FAERS Safety Report 11507668 (Version 1)
Quarter: 2015Q3

REPORT INFORMATION
  Report Type: Spontaneous
  Country: US (occurrence: US)
  Receive Date: 20150903
  Receipt Date: 20150903
  Transmission Date: 20151125
  Serious: No
  Sender: FDA-Public Use
  Company Number: US-ELI_LILLY_AND_COMPANY-US200909000885

PATIENT
  Sex: Female

DRUGS (8)
  1. LANTUS [Concomitant]
     Active Substance: INSULIN GLARGINE
  2. LISINOPRIL. [Concomitant]
     Active Substance: LISINOPRIL
  3. HUMALOG [Suspect]
     Active Substance: INSULIN LISPRO
  4. LEVOTHYROXINE. [Concomitant]
     Active Substance: LEVOTHYROXINE
  5. IBUPROFEN. [Concomitant]
     Active Substance: IBUPROFEN
  6. ASA [Concomitant]
     Active Substance: ASPIRIN
  7. HUMALOG [Suspect]
     Active Substance: INSULIN LISPRO
  8. PLAVIX [Concomitant]
     Active Substance: CLOPIDOGREL BISULFATE

REACTIONS (3)
  - Visual acuity reduced [Not Recovered/Not Resolved]
  - Diabetic retinopathy [Not Recovered/Not Resolved]
  - Laser therapy [Unknown]

NARRATIVE: CASE EVENT DATE: 2004
